FAERS Safety Report 6929099-5 (Version None)
Quarter: 2010Q3

REPORT INFORMATION
  Report Type: 
  Country: None (occurrence: None)
  Receive Date: 20100811
  Receipt Date: 20100727
  Transmission Date: 20110219
  Serious: Yes (Hospitalization)
  Sender: FDA-Public Use
  Company Number: TPA2010A03306

PATIENT
  Age: 61 Year
  Sex: Male
  Weight: 130 kg

DRUGS (16)
  1. ADENURIC (FEBUXOSTAT) [Suspect]
     Indication: GOUT
     Dosage: 80 MG, 1 IN 1 D, ORAL
     Route: 048
     Dates: start: 20100430, end: 20100516
  2. COLCHIMAX (COLCHICINE) [Concomitant]
  3. TEMERIT (NEBIVOLOL) [Concomitant]
  4. PREGABALIN [Concomitant]
  5. VASTAREL (TRIMETAZIDINE HYDROCHLORIDE) [Concomitant]
  6. CETIRIZINE HCL [Concomitant]
  7. IRBESARTAN [Concomitant]
  8. ESIDRIX [Concomitant]
  9. RAMIPRIL [Concomitant]
  10. FUROSEMIDE [Concomitant]
  11. FLUTICASONE PROPIONATE [Concomitant]
  12. FLUTICASONE PROPIONATE [Concomitant]
  13. IMOVANE (ZOPICLONE) [Concomitant]
  14. INSULIN (INSULIN) [Concomitant]
  15. ALLOPURINOL [Concomitant]
  16. CLONAZEPAM [Concomitant]

REACTIONS (7)
  - DIABETES MELLITUS INADEQUATE CONTROL [None]
  - DIZZINESS [None]
  - GAIT DISTURBANCE [None]
  - HEADACHE [None]
  - MUSCULAR WEAKNESS [None]
  - RENAL FAILURE [None]
  - RHABDOMYOLYSIS [None]
